FAERS Safety Report 22068334 (Version 1)
Quarter: 2023Q1

REPORT INFORMATION
  Report Type: Spontaneous
  Country: US (occurrence: US)
  Receive Date: 20230307
  Receipt Date: 20230307
  Transmission Date: 20230418
  Serious: Yes (Other)
  Sender: FDA-Public Use
  Company Number: US-MLMSERVICE-20230215-3698142-1

PATIENT
  Age: 63 Year
  Sex: Female

DRUGS (1)
  1. PREDNISONE [Suspect]
     Active Substance: PREDNISONE
     Indication: Drug eruption
     Dosage: UNK (HIGH DOSE)
     Route: 065

REACTIONS (3)
  - Herpes simplex [Recovered/Resolved]
  - Milia [Not Recovered/Not Resolved]
  - Herpes dermatitis [Recovered/Resolved]
